FAERS Safety Report 7213037-4 (Version None)
Quarter: 2011Q1

REPORT INFORMATION
  Report Type: 
  Country: None (occurrence: None)
  Receive Date: 20110106
  Receipt Date: 20101224
  Transmission Date: 20110831
  Serious: Yes (Hospitalization)
  Sender: FDA-Public Use
  Company Number: B0687844A

PATIENT
  Sex: Male

DRUGS (2)
  1. AUGMENTIN '125' [Suspect]
     Dosage: 750MG PER DAY
     Route: 048
     Dates: start: 20101124, end: 20101126
  2. PARACETAMOL [Concomitant]
     Dosage: 1G PER DAY
     Route: 042
     Dates: start: 20101124, end: 20101124

REACTIONS (4)
  - LIVER DISORDER [None]
  - PHARYNGEAL ERYTHEMA [None]
  - RASH [None]
  - ERYTHEMA [None]
